FAERS Safety Report 6644017-5 (Version None)
Quarter: 2010Q1

REPORT INFORMATION
  Report Type: 
  Country: None (occurrence: None)
  Receive Date: 20100319
  Receipt Date: 20100319
  Transmission Date: 20100710
  Serious: Yes (Hospitalization)
  Sender: FDA-Public Use
  Company Number: None

PATIENT
  Age: 49 Year
  Sex: Male
  Weight: 90.7194 kg

DRUGS (2)
  1. CLOPIDOGREL BISULFATE [Suspect]
     Indication: MYOCARDIAL INFARCTION
     Dosage: 75MG DAILY ORAL
     Route: 048
     Dates: start: 20100119, end: 20100216
  2. CLOPIDOGREL BISULFATE [Suspect]
     Indication: PERIPHERAL VASCULAR DISORDER
     Dosage: 75MG DAILY ORAL
     Route: 048
     Dates: start: 20100119, end: 20100216

REACTIONS (3)
  - PERIPHERAL VASCULAR DISORDER [None]
  - PRURITUS [None]
  - SWELLING [None]
